FAERS Safety Report 9228727 (Version 3)
Quarter: 2013Q2

REPORT INFORMATION
  Report Type: Spontaneous
  Country: US (occurrence: US)
  Receive Date: 20130412
  Receipt Date: 20130614
  Transmission Date: 20140414
  Serious: Yes (Disabling, Other)
  Sender: FDA-Public Use
  Company Number: US-JNJFOC-20130402471

PATIENT
  Age: 44 Year
  Sex: Female
  Weight: 95.26 kg

DRUGS (10)
  1. INVEGA SUSTENNA [Suspect]
     Indication: SCHIZOPHRENIA
     Route: 030
     Dates: end: 20130405
  2. INVEGA SUSTENNA [Suspect]
     Indication: SCHIZOPHRENIA
     Route: 030
     Dates: start: 20121127
  3. TRAZODONE [Concomitant]
     Indication: SLEEP DISORDER
     Route: 065
  4. ARTANE [Concomitant]
     Indication: EXTRAPYRAMIDAL DISORDER
  5. AMANTADINE [Concomitant]
     Indication: EXTRAPYRAMIDAL DISORDER
     Dosage: 27 NOVEMBER IN AN UNSPECIFIED YEAR TO 05 APRIL IN AN UNSPECIFIED YEAR
     Route: 065
  6. VENLAFAXINE [Concomitant]
     Indication: DEPRESSION
     Dosage: 27 NOVEMBER IN AN UNSPECIFIED YEAR TO 05 APRIL IN AN UNSPECIFIED YEAR
     Route: 065
  7. MORPHINE SULPHATE [Concomitant]
     Indication: PAIN
     Dosage: 27 NOVEMBER IN AN UNSPECIFIED YEAR TO 05 APRIL IN AN UNSPECIFIED YEAR
     Route: 065
  8. ALPRAZOLAM [Concomitant]
     Indication: ANXIETY
     Dosage: 27 NOVEMBER IN AN UNSPECIFIED YEAR TO 05 APRIL IN AN UNSPECIFIED YEAR
     Route: 065
  9. OMEPRAZOLE [Concomitant]
     Indication: ABDOMINAL DISCOMFORT
     Route: 065
  10. METHYLPHENIDATE [Concomitant]
     Indication: ATTENTION DEFICIT/HYPERACTIVITY DISORDER
     Dosage: AT 01: PM
     Route: 048

REACTIONS (1)
  - Tardive dyskinesia [Recovering/Resolving]
